FAERS Safety Report 9835461 (Version 2)
Quarter: 2014Q1

REPORT INFORMATION
  Report Type: Spontaneous
  Country: US (occurrence: US)
  Receive Date: 20140122
  Receipt Date: 20140122
  Transmission Date: 20141002
  Serious: No
  Sender: FDA-Public Use
  Company Number: US-BRISTOL-MYERS SQUIBB COMPANY-19637743

PATIENT
  Age: 84 Year
  Sex: Female
  Weight: 92.51 kg

DRUGS (10)
  1. ELIQUIS [Suspect]
     Indication: ATRIAL FIBRILLATION
     Dosage: 5MG TABS?8OCT13 ALSO TKN?6SP13-8NOV13
     Route: 048
     Dates: start: 20130907
  2. BUMETANIDE [Concomitant]
     Dosage: 0.5MG TAB?TKN ON 4OCT13
     Route: 048
     Dates: start: 20130907
  3. DILTIAZEM HCL [Concomitant]
     Dates: start: 20130907
  4. LEVOTHYROXINE SODIUM [Concomitant]
     Route: 048
     Dates: start: 20130426
  5. ZANTAC [Concomitant]
     Dosage: 75MG TAB
     Route: 048
     Dates: start: 20090316
  6. ADVIL [Concomitant]
  7. VOLTAREN [Concomitant]
     Indication: ARTHRITIS
     Route: 062
     Dates: start: 20130430
  8. DILTIAZEM HCL [Concomitant]
     Route: 048
     Dates: start: 20130906
  9. CALCIUM [Concomitant]
     Dosage: CALCIUM 500 + D(500-125MG)
     Route: 048
     Dates: start: 20090316
  10. FISH OIL [Concomitant]
     Dates: start: 20090316

REACTIONS (1)
  - Anaemia [Unknown]
